FAERS Safety Report 9303691 (Version 1)
Quarter: 2013Q2

REPORT INFORMATION
  Report Type: Spontaneous
  Country: GB (occurrence: None)
  Receive Date: 20130516
  Receipt Date: 20130516
  Transmission Date: 20140414
  Serious: Yes (Other)
  Sender: FDA-Public Use
  Company Number: AUR-APL-2013-03792

PATIENT
  Age: 72 Year
  Sex: Male

DRUGS (3)
  1. AMOXICILLIN [Suspect]
     Indication: TOOTH INFECTION
     Route: 048
     Dates: start: 20130410, end: 20130412
  2. ALLOPURINOL [Suspect]
     Indication: GOUT
     Route: 048
     Dates: start: 201207
  3. ASPIRIN (ACETYLSALICYLIC ACID) [Concomitant]

REACTIONS (3)
  - Gout [None]
  - Inhibitory drug interaction [None]
  - Pain [None]
